FAERS Safety Report 23676182 (Version 2)
Quarter: 2024Q2

REPORT INFORMATION
  Report Type: Spontaneous
  Country: US (occurrence: US)
  Receive Date: 20240327
  Receipt Date: 20240402
  Transmission Date: 20240715
  Serious: Yes (Death, Life-Threatening, Hospitalization, Other)
  Sender: FDA-Public Use
  Company Number: None

PATIENT

DRUGS (1)
  1. HYDROXYCHLOROQUINE [Suspect]
     Active Substance: HYDROXYCHLOROQUINE
     Indication: Systemic lupus erythematosus
     Dosage: UNK

REACTIONS (6)
  - Malnutrition [Fatal]
  - Atrioventricular block complete [Fatal]
  - Cardiac failure chronic [Fatal]
  - Cardiomyopathy [Fatal]
  - Chest pain [Fatal]
  - Dyspnoea [Fatal]
